FAERS Safety Report 4711948-2 (Version None)
Quarter: 2005Q3

REPORT INFORMATION
  Report Type: 
  Country: None (occurrence: None)
  Receive Date: 20050708
  Receipt Date: 20040827
  Transmission Date: 20060218
  Serious: Yes (Hospitalization)
  Sender: FDA-Public Use
  Company Number: US-2004-031037

PATIENT
  Age: 57 Year
  Sex: Male

DRUGS (10)
  1. ULTRAVIST 300 [Suspect]
     Indication: COMPUTERISED TOMOGRAM
     Dosage: 150 ML, 1 DOSE, INTRAVENOUS
     Route: 042
     Dates: start: 20040826, end: 20040826
  2. ULTRAVIST 300 [Suspect]
     Indication: COMPUTERISED TOMOGRAM ABDOMEN
     Dosage: 150 ML, 1 DOSE, INTRAVENOUS
     Route: 042
     Dates: start: 20040826, end: 20040826
  3. PLAVIX [Concomitant]
  4. HYZAAR [Concomitant]
  5. TRILEPTAL [Concomitant]
  6. ACETYLSALICYLIC ACID SRT [Concomitant]
  7. METOPROLOL SUCCINATE [Concomitant]
  8. KEPPRA [Concomitant]
  9. NITROGLYCERIN [Concomitant]
  10. LIPITOR [Concomitant]

REACTIONS (3)
  - DYSPNOEA [None]
  - GENERALISED ERYTHEMA [None]
  - PALPITATIONS [None]
